FAERS Safety Report 22585437 (Version 3)
Quarter: 2023Q2

REPORT INFORMATION
  Report Type: Report from Study
  Country: US (occurrence: US)
  Receive Date: 20230610
  Receipt Date: 20230623
  Transmission Date: 20230721
  Serious: Yes (Hospitalization)
  Sender: FDA-Public Use
  Company Number: US-002147023-NVSC2023US132407

PATIENT
  Sex: Female

DRUGS (8)
  1. KESIMPTA [Suspect]
     Active Substance: OFATUMUMAB
     Indication: Multiple sclerosis
     Dosage: 0.4 ML, QW
     Route: 030
  2. KESIMPTA [Suspect]
     Active Substance: OFATUMUMAB
     Dosage: 20 MG, QW
     Route: 030
  3. KESIMPTA [Suspect]
     Active Substance: OFATUMUMAB
     Dosage: 20 MG/ 0.4 ML QW (INJECT AT WEEK 0, 1 AND 2 AS DIRECTED)
     Route: 058
  4. CODEINE [Suspect]
     Active Substance: CODEINE
     Indication: Product used for unknown indication
     Dosage: UNK
     Route: 065
  5. OMEGA-3 ACIDS [Concomitant]
     Active Substance: OMEGA-3 FATTY ACIDS
     Indication: Product used for unknown indication
     Dosage: UNK
     Route: 065
  6. VITAMIN D3 [Concomitant]
     Active Substance: CHOLECALCIFEROL
     Indication: Product used for unknown indication
     Dosage: UNK
     Route: 065
  7. LEVOTHYROXINE SODIUM [Concomitant]
     Active Substance: LEVOTHYROXINE SODIUM
     Indication: Product used for unknown indication
     Dosage: UNK
     Route: 065
  8. VALACYCLOVIR HYDROCHLORIDE [Concomitant]
     Active Substance: VALACYCLOVIR HYDROCHLORIDE
     Indication: Product used for unknown indication
     Dosage: UNK
     Route: 065

REACTIONS (13)
  - Nausea [Unknown]
  - Vomiting [Unknown]
  - Burning sensation [Unknown]
  - Pain [Unknown]
  - Pruritus [Unknown]
  - Pyrexia [Unknown]
  - Diarrhoea [Unknown]
  - Dizziness [Unknown]
  - Chills [Unknown]
  - Hypersensitivity [Unknown]
  - Wrong technique in device usage process [Unknown]
  - Incorrect dose administered [Unknown]
  - Accidental exposure to product [Unknown]
